FAERS Safety Report 4386875-3 (Version None)
Quarter: 2004Q2

REPORT INFORMATION
  Report Type: 
  Country: None (occurrence: None)
  Receive Date: 20040628
  Receipt Date: 20040628
  Transmission Date: 20050107
  Serious: Yes (Life-Threatening)
  Sender: FDA-Public Use
  Company Number: None

PATIENT
  Age: 9 Year
  Sex: Male

DRUGS (1)
  1. AUGMENTIN [Suspect]
     Indication: BIPOLAR DISORDER
     Dosage: 250 MG/ TID/PO
     Route: 048
     Dates: start: 20040528, end: 20040607

REACTIONS (2)
  - NEUTROPHIL COUNT DECREASED [None]
  - WHITE BLOOD CELL COUNT DECREASED [None]
